FAERS Safety Report 16525376 (Version 1)
Quarter: 2019Q3

REPORT INFORMATION
  Report Type: Spontaneous
  Country: US (occurrence: US)
  Receive Date: 20190703
  Receipt Date: 20190703
  Transmission Date: 20191004
  Serious: No
  Sender: FDA-Public Use
  Company Number: US-AMGEN-USASP2019105169

PATIENT
  Age: 70 Year
  Sex: Female

DRUGS (9)
  1. NOVOLOG [Concomitant]
     Active Substance: INSULIN ASPART
     Indication: DIABETES MELLITUS
     Dosage: UNK
  2. METFORMIN [Concomitant]
     Active Substance: METFORMIN HYDROCHLORIDE
     Indication: DIABETES MELLITUS
     Dosage: UNK
  3. PROTONIX [OMEPRAZOLE] [Concomitant]
     Active Substance: OMEPRAZOLE
     Indication: GASTROOESOPHAGEAL REFLUX DISEASE
     Dosage: UNK
  4. GABAPENTIN. [Concomitant]
     Active Substance: GABAPENTIN
     Indication: RESTLESS LEGS SYNDROME
     Dosage: UNK
  5. ALTACE [Concomitant]
     Active Substance: RAMIPRIL
     Indication: HYPERTENSION
     Dosage: 10MG/20MG, UNK
  6. MAGNESIUM [Concomitant]
     Active Substance: MAGNESIUM
     Dosage: UNK
  7. ENBREL [Suspect]
     Active Substance: ETANERCEPT
     Indication: PSORIASIS
     Dosage: 50 MILLIGRAM, 2 TIMES/WK
     Route: 065
     Dates: start: 20190610, end: 20190620
  8. VITAMIN D3 [Concomitant]
     Active Substance: CHOLECALCIFEROL
     Dosage: UNK
  9. ZETIA [Concomitant]
     Active Substance: EZETIMIBE
     Indication: BLOOD CHOLESTEROL ABNORMAL
     Dosage: UNK

REACTIONS (3)
  - Injection site pruritus [Recovered/Resolved]
  - Injection site rash [Recovered/Resolved]
  - Injection site erythema [Recovering/Resolving]

NARRATIVE: CASE EVENT DATE: 201906
